FAERS Safety Report 7449247-0 (Version None)
Quarter: 2011Q2

REPORT INFORMATION
  Report Type: 
  Country: None (occurrence: None)
  Receive Date: 20110502
  Receipt Date: 20110414
  Transmission Date: 20111010
  Serious: Yes (Other)
  Sender: FDA-Public Use
  Company Number: LB-BAYER-2011-032365

PATIENT
  Age: 39 Year
  Sex: Male

DRUGS (3)
  1. IBUPROFEN [Suspect]
     Indication: TOOTH INFECTION
     Route: 065
  2. RODOGYL [Suspect]
     Indication: TOOTH INFECTION
     Route: 065
  3. METRONIDAZOLE [Suspect]
     Indication: TOOTH INFECTION
     Route: 065

REACTIONS (10)
  - JAUNDICE [None]
  - BLOOD ALKALINE PHOSPHATASE INCREASED [None]
  - ALANINE AMINOTRANSFERASE INCREASED [None]
  - BLOOD BILIRUBIN UNCONJUGATED INCREASED [None]
  - HEPATOTOXICITY [None]
  - LIVER DISORDER [None]
  - CHROMATURIA [None]
  - BLOOD BILIRUBIN INCREASED [None]
  - LIVER INJURY [None]
  - ASPARTATE AMINOTRANSFERASE INCREASED [None]
